FAERS Safety Report 5934932-X (Version None)
Quarter: 2008Q4

REPORT INFORMATION
  Report Type: 
  Country: None (occurrence: None)
  Receive Date: 20081027
  Receipt Date: 20081021
  Transmission Date: 20090506
  Serious: Yes (Other)
  Sender: FDA-Public Use
  Company Number: CHNY2007BR03548

PATIENT
  Age: 23 Year
  Sex: Female
  Weight: 54 kg

DRUGS (1)
  1. CIBALENAA (NCH) (CAFFEINE CITRATE, ACETYLSALICYLIC ACID, ACETAMINOPHEN [Suspect]
     Dosage: 6 DF, ONCE/SINGLE, ORAL
     Route: 048
     Dates: start: 20071016, end: 20071016

REACTIONS (5)
  - DRUG EXPOSURE DURING PREGNANCY [None]
  - INCORRECT DOSE ADMINISTERED [None]
  - INTENTIONAL DRUG MISUSE [None]
  - NO ADVERSE EVENT [None]
  - NORMAL NEWBORN [None]
